FAERS Safety Report 8790856 (Version 1)
Quarter: 2012Q4

REPORT INFORMATION
  Report Type: Spontaneous
  Country: US (occurrence: None)
  Receive Date: 20120906
  Receipt Date: 20120906
  Transmission Date: 20130627
  Serious: Yes (Other)
  Sender: FDA-Public Use
  Company Number: 2012P1055072

PATIENT
  Age: 66 Year
  Sex: Female
  Weight: 65.77 kg

DRUGS (15)
  1. FENTANYL PATCH 25 MCG/HR (NO PREF. NAME) [Suspect]
     Indication: PAIN
     Dosage: 1 patch;Q72H
     Route: 062
     Dates: start: 201205, end: 201207
  2. FENTANYL PATCH 25 MCG/HR (NO PREF. NAME) [Suspect]
     Indication: BURSITIS
     Dosage: 1 patch;Q72H
     Route: 062
     Dates: start: 201205, end: 201207
  3. FENTANYL PATCH 25 MCG/HR (NO PREF. NAME) [Suspect]
     Indication: NEUROPATHIC PAIN
     Dosage: 1 patch;Q72H
     Route: 062
     Dates: start: 201205, end: 201207
  4. FENTANYL PATCH 25 MCG/HR (NO PREF. NAME) [Suspect]
     Indication: PAIN
     Dosage: 1 patch;Q72H
     Route: 062
     Dates: start: 201207
  5. FENTANYL PATCH 25 MCG/HR (NO PREF. NAME) [Suspect]
     Indication: BURSITIS
     Dosage: 1 patch;Q72H
     Route: 062
     Dates: start: 201207
  6. FENTANYL PATCH 25 MCG/HR (NO PREF. NAME) [Suspect]
     Indication: NEUROPATHIC PAIN
     Dosage: 1 patch;Q72H
     Route: 062
     Dates: start: 201207
  7. INSULIN PUMP [Concomitant]
  8. LISINOPRIL [Concomitant]
  9. PRAVASTATIN [Concomitant]
  10. PRILOSEC [Concomitant]
  11. GABAPENTIN [Concomitant]
  12. MULTIVITAMIN [Concomitant]
  13. FISH OIL [Concomitant]
  14. FOLIC ACID [Concomitant]
  15. CALCIUM/VITAMIN D [Concomitant]

REACTIONS (7)
  - Inadequate analgesia [None]
  - Diarrhoea [None]
  - Blood glucose decreased [None]
  - Malaise [None]
  - Fall [None]
  - Balance disorder [None]
  - Dizziness [None]
